FAERS Safety Report 22280591 (Version 1)
Quarter: 2023Q2

REPORT INFORMATION
  Report Type: Spontaneous
  Country: JP (occurrence: JP)
  Receive Date: 20230503
  Receipt Date: 20230503
  Transmission Date: 20230722
  Serious: Yes (Other)
  Sender: FDA-Public Use
  Company Number: JP-MSD-M2023-14535

PATIENT
  Age: 66 Year
  Sex: Male

DRUGS (3)
  1. KEYTRUDA [Suspect]
     Active Substance: PEMBROLIZUMAB
     Dosage: 200 MILLIGRAM, Q3W
     Route: 041
  2. CISPLATIN [Concomitant]
     Active Substance: CISPLATIN
     Dosage: 80 MILLIGRAM/SQ. METER, Q3W
     Route: 051
  3. FLUOROURACIL [Concomitant]
     Active Substance: FLUOROURACIL
     Dosage: 800 MILLIGRAM/SQ. METER, 5 TIMES IN 3 WEEKS
     Route: 051

REACTIONS (5)
  - Gastric ulcer haemorrhage [Unknown]
  - Hyperkalaemia [Recovered/Resolved]
  - Hypokalaemia [Unknown]
  - Haemoglobin decreased [Unknown]
  - Blood creatinine increased [Unknown]
